FAERS Safety Report 6035389-3 (Version None)
Quarter: 2009Q1

REPORT INFORMATION
  Report Type: 
  Country: None (occurrence: None)
  Receive Date: 20090112
  Receipt Date: 20090112
  Transmission Date: 20090719
  Serious: Yes (Death, Hospitalization)
  Sender: FDA-Public Use
  Company Number: None

PATIENT
  Age: 43 Year
  Sex: Female
  Weight: 39.5 kg

DRUGS (4)
  1. TRUVADA [Suspect]
     Indication: HIV INFECTION
     Dosage: 500 MILLIGRAMS ONCE DAILY ORALLY
     Route: 048
     Dates: start: 20080607, end: 20081209
  2. ALUVIA (LOPINAVIR/RITONAVIR) [Suspect]
     Indication: HIV INFECTION
     Dosage: 500 MILLIGRAMS TWICE DAILY ORALLY
     Route: 048
     Dates: start: 20080607, end: 20081210
  3. COTRIM [Concomitant]
  4. ACETAMINOPHEN [Concomitant]

REACTIONS (24)
  - ALANINE AMINOTRANSFERASE INCREASED [None]
  - ANOREXIA [None]
  - ASCITES [None]
  - ASPARTATE AMINOTRANSFERASE INCREASED [None]
  - BLOOD BILIRUBIN INCREASED [None]
  - BRONCHOPNEUMONIA [None]
  - CACHEXIA [None]
  - DISSEMINATED TUBERCULOSIS [None]
  - GASTROENTERITIS [None]
  - HAEMOGLOBIN DECREASED [None]
  - HEPATOMEGALY [None]
  - HYPOALBUMINAEMIA [None]
  - HYPONATRAEMIA [None]
  - HYPOTENSION [None]
  - IMMUNE RECONSTITUTION SYNDROME [None]
  - LYMPHADENITIS [None]
  - MALNUTRITION [None]
  - OESOPHAGEAL CANDIDIASIS [None]
  - PERITONITIS [None]
  - PLEURISY [None]
  - PROTEIN TOTAL DECREASED [None]
  - SEPSIS [None]
  - URINARY TRACT INFECTION [None]
  - WEIGHT DECREASED [None]
